FAERS Safety Report 25884622 (Version 3)
Quarter: 2025Q4

REPORT INFORMATION
  Report Type: Spontaneous
  Country: GB (occurrence: GB)
  Receive Date: 20251006
  Receipt Date: 20251110
  Transmission Date: 20260118
  Serious: Yes (Life-Threatening, Other)
  Sender: SANDOZ
  Company Number: None

PATIENT
  Age: 42 Year
  Sex: Female
  Weight: 86 kg

DRUGS (11)
  1. BETADINE [Suspect]
     Active Substance: POVIDONE-IODINE
     Indication: Adverse drug reaction
     Dosage: UNK
     Route: 065
     Dates: start: 20250923, end: 20250923
  2. BETADINE [Suspect]
     Active Substance: POVIDONE-IODINE
     Indication: Axillary lymphadenectomy
  3. BETADINE [Suspect]
     Active Substance: POVIDONE-IODINE
     Indication: Mastectomy
  4. BETADINE [Suspect]
     Active Substance: POVIDONE-IODINE
     Indication: Preoperative care
  5. AMOXICILLIN\CLAVULANATE POTASSIUM [Suspect]
     Active Substance: AMOXICILLIN\CLAVULANATE POTASSIUM
     Indication: Surgery
     Dosage: 1.2 G IV
     Route: 042
     Dates: start: 20250923, end: 20250923
  6. DECADRON (DEXAMETHASONE SODIUM PHOSPHATE) [Suspect]
     Active Substance: DEXAMETHASONE SODIUM PHOSPHATE
     Indication: Anaesthesia
     Dosage: 6.6 MG IV
     Route: 042
     Dates: start: 20250923, end: 20250923
  7. ONDANSETRON [Suspect]
     Active Substance: ONDANSETRON
     Indication: Anaesthesia
     Dosage: 4 MG IV
     Route: 040
     Dates: start: 20250923, end: 20250923
  8. REMIFENTANIL [Suspect]
     Active Substance: REMIFENTANIL
     Indication: Anaesthesia
     Dosage: UNK
     Route: 065
     Dates: start: 20250923, end: 20250923
  9. TRANEXAMIC ACID [Suspect]
     Active Substance: TRANEXAMIC ACID
     Dosage: 1 GRAM
     Route: 040
     Dates: start: 20250923, end: 20250923
  10. TRANEXAMIC ACID [Suspect]
     Active Substance: TRANEXAMIC ACID
     Indication: Surgery
     Dosage: 1 G IV
     Route: 042
     Dates: start: 20250923, end: 20250923
  11. PROPOFOL [Concomitant]
     Active Substance: PROPOFOL
     Indication: Anaesthesia
     Dosage: UNK
     Route: 065

REACTIONS (9)
  - Hypotension [Recovered/Resolved]
  - Cardiac arrest [Recovered/Resolved]
  - Generalised oedema [Recovered/Resolved]
  - Sinus tachycardia [Recovered/Resolved]
  - Piloerection [Recovered/Resolved]
  - Anaphylactic reaction [Unknown]
  - Pulseless electrical activity [Unknown]
  - PCO2 decreased [Unknown]
  - Pulse abnormal [Unknown]

NARRATIVE: CASE EVENT DATE: 20250923
